FAERS Safety Report 24835147 (Version 1)
Quarter: 2025Q1

REPORT INFORMATION
  Report Type: Spontaneous
  Country: GB (occurrence: GB)
  Receive Date: 20250113
  Receipt Date: 20250113
  Transmission Date: 20250408
  Serious: Yes (Hospitalization, Other)
  Sender: IPSEN BIOPHARMACEUTICALS, INC.
  Company Number: None

PATIENT
  Sex: Male

DRUGS (4)
  1. LANREOTIDE [Suspect]
     Active Substance: LANREOTIDE
     Indication: Neuroendocrine tumour
     Dosage: 120MG EVERY 28 DAYS
     Route: 065
     Dates: start: 20250103
  2. FERROUS SULFATE [Concomitant]
     Active Substance: FERROUS SULFATE
     Indication: Iron deficiency
  3. MORPHINE [Concomitant]
     Active Substance: MORPHINE
  4. OMEPRAZOLE [Concomitant]
     Active Substance: OMEPRAZOLE
     Route: 050

REACTIONS (1)
  - Intestinal obstruction [Not Recovered/Not Resolved]

NARRATIVE: CASE EVENT DATE: 20250105
